FAERS Safety Report 10008120 (Version 2)
Quarter: 2014Q1

REPORT INFORMATION
  Report Type: Spontaneous
  Country: US (occurrence: US)
  Receive Date: 20140313
  Receipt Date: 20140313
  Transmission Date: 20141002
  Serious: Yes (Hospitalization, Other)
  Sender: FDA-Public Use
  Company Number: US-GILEAD-2014-0096249

PATIENT
  Age: 68 Year
  Sex: Male

DRUGS (3)
  1. LETAIRIS [Suspect]
     Indication: PULMONARY HYPERTENSION
     Route: 065
     Dates: start: 20131105
  2. TYVASO [Concomitant]
     Indication: PULMONARY HYPERTENSION
     Dosage: 0.6 MG, QID
     Dates: start: 20140128
  3. ADCIRCA [Concomitant]
     Indication: PRODUCT USED FOR UNKNOWN INDICATION
     Dosage: UNK

REACTIONS (3)
  - Renal failure [Unknown]
  - Hypotension [Unknown]
  - Unevaluable event [Unknown]
